FAERS Safety Report 4395967-4 (Version None)
Quarter: 2004Q3

REPORT INFORMATION
  Report Type: 
  Country: None (occurrence: None)
  Receive Date: 20040707
  Receipt Date: 20040624
  Transmission Date: 20050211
  Serious: Yes (Hospitalization)
  Sender: FDA-Public Use
  Company Number: 2004220952IT

PATIENT
  Age: 35 Year
  Sex: Female

DRUGS (2)
  1. CELEBREX [Suspect]
     Indication: RHEUMATOID ARTHRITIS
     Dosage: 1 DF, QD, ORAL
     Route: 048
     Dates: start: 20040407, end: 20040614
  2. HYDROXYCHLOROQUINE (HYDROXYCHOLOROQUINE) [Suspect]
     Indication: RHEUMATOID ARTHRITIS
     Dosage: 1 DF, QD
     Dates: start: 20040407, end: 20040614

REACTIONS (4)
  - INTESTINAL OBSTRUCTION [None]
  - NAUSEA [None]
  - PELVIC PAIN [None]
  - VOMITING [None]
